FAERS Safety Report 18679682 (Version 4)
Quarter: 2021Q1

REPORT INFORMATION
  Report Type: Report from Study
  Country: US (occurrence: US)
  Receive Date: 20201229
  Receipt Date: 20210219
  Transmission Date: 20210419
  Serious: No
  Sender: FDA-Public Use
  Company Number: NVSC2020US344330

PATIENT
  Sex: Male

DRUGS (1)
  1. COSENTYX [Suspect]
     Active Substance: SECUKINUMAB
     Indication: PRODUCT USED FOR UNKNOWN INDICATION
     Dosage: UNK UNK, UNKNOWN
     Route: 065

REACTIONS (7)
  - Erythema [Unknown]
  - Onychomadesis [Unknown]
  - Grip strength decreased [Unknown]
  - Product dose omission issue [Unknown]
  - Arthritis [Unknown]
  - Psoriasis [Unknown]
  - Musculoskeletal stiffness [Unknown]
